FAERS Safety Report 11822657 (Version 1)
Quarter: 2015Q4

REPORT INFORMATION
  Report Type: Spontaneous
  Country: US (occurrence: US)
  Receive Date: 20151210
  Receipt Date: 20151210
  Transmission Date: 20160305
  Serious: No
  Sender: FDA-Public Use
  Company Number: US-JNJFOC-20150614725

PATIENT
  Sex: Male

DRUGS (13)
  1. ASPIRIN. [Concomitant]
     Active Substance: ASPIRIN
  2. VIAGRA [Concomitant]
     Active Substance: SILDENAFIL CITRATE
  3. IMBRUVICA [Suspect]
     Active Substance: IBRUTINIB
     Indication: CHRONIC LEUKAEMIA
     Route: 048
     Dates: start: 20141129
  4. ALLOPURINOL. [Concomitant]
     Active Substance: ALLOPURINOL
  5. ALUMINIUM HYDROXIDE-MAGNESIUM CARBONATE GEL [Concomitant]
  6. BUSPAR [Concomitant]
     Active Substance: BUSPIRONE HYDROCHLORIDE
  7. BUPROPION. [Concomitant]
     Active Substance: BUPROPION
  8. PROZAC [Concomitant]
     Active Substance: FLUOXETINE HYDROCHLORIDE
  9. SIMVASTATIN. [Concomitant]
     Active Substance: SIMVASTATIN
  10. IMBRUVICA [Suspect]
     Active Substance: IBRUTINIB
     Indication: CHRONIC LEUKAEMIA
     Route: 048
  11. CYMBALTA [Concomitant]
     Active Substance: DULOXETINE HYDROCHLORIDE
  12. LISINOPRIL. [Concomitant]
     Active Substance: LISINOPRIL
  13. VALACYCLOVIR [Concomitant]
     Active Substance: VALACYCLOVIR HYDROCHLORIDE

REACTIONS (5)
  - Diarrhoea [Unknown]
  - Neutropenia [Unknown]
  - Fatigue [Unknown]
  - Dizziness [Unknown]
  - Immunodeficiency [Unknown]

NARRATIVE: CASE EVENT DATE: 2014
